FAERS Safety Report 9866832 (Version 1)
Quarter: 2014Q1

REPORT INFORMATION
  Report Type: Spontaneous
  Country: US (occurrence: None)
  Receive Date: 20140203
  Receipt Date: 20140203
  Transmission Date: 20141002
  Serious: Yes (Death)
  Sender: FDA-Public Use
  Company Number: None

PATIENT
  Age: 52 Year
  Sex: Male
  Weight: 99.79 kg

DRUGS (1)
  1. ALEVE [Suspect]
     Indication: HEADACHE
     Dosage: TAKEN BY MOUTH
     Route: 048
     Dates: start: 20130914

REACTIONS (8)
  - Pruritus [None]
  - Swelling face [None]
  - Eye swelling [None]
  - Abdominal distension [None]
  - Incoherent [None]
  - Ocular hyperaemia [None]
  - Muscle swelling [None]
  - Respiratory arrest [None]
